FAERS Safety Report 15529685 (Version 1)
Quarter: 2018Q4

REPORT INFORMATION
  Report Type: Spontaneous
  Country: US (occurrence: US)
  Receive Date: 20181018
  Receipt Date: 20181018
  Transmission Date: 20190205
  Serious: No
  Sender: FDA-Public Use
  Company Number: US-AMGEN-USASP2018119258

PATIENT
  Sex: Female

DRUGS (19)
  1. AMLODIPINE [Concomitant]
     Active Substance: AMLODIPINE BESYLATE
     Dosage: 5 MG, UNK
  2. FENOFIBRATE. [Concomitant]
     Active Substance: FENOFIBRATE
     Dosage: 145 MG, UNK
  3. KETOROLAC [Concomitant]
     Active Substance: KETOROLAC\KETOROLAC TROMETHAMINE
     Dosage: UNK , (SOL 0.5%)
  4. LEVOTHYROXIN [Concomitant]
     Active Substance: LEVOTHYROXINE
     Dosage: 125 MUG, UNK
  5. SYMBICORT [Concomitant]
     Active Substance: BUDESONIDE\FORMOTEROL FUMARATE DIHYDRATE
     Dosage: UNK (AER 160-4.5)
  6. ATORVASTATIN [Concomitant]
     Active Substance: ATORVASTATIN
     Dosage: 80 MG, UNK
  7. TYLENOL WITH CODEINE [Concomitant]
     Active Substance: ACETAMINOPHEN\CODEINE PHOSPHATE
     Dosage: UNK
  8. CLOPIDOGREL [Concomitant]
     Active Substance: CLOPIDOGREL BISULFATE
     Dosage: 75 MG, UNK
  9. LANTUS [Concomitant]
     Active Substance: INSULIN GLARGINE
     Dosage: UNK (100 ML)
  10. PANTOPRAZOLE [Concomitant]
     Active Substance: PANTOPRAZOLE
     Dosage: 40 MG, UNK
  11. FAMOTIDINE. [Concomitant]
     Active Substance: FAMOTIDINE
     Dosage: 20 MG, UNK
  12. FLUTICASONE. [Concomitant]
     Active Substance: FLUTICASONE
     Dosage: 50 MUG, UNK
  13. LATANOPROST. [Concomitant]
     Active Substance: LATANOPROST
     Dosage: UNK, (SOL 0.005%)
  14. REPATHA [Suspect]
     Active Substance: EVOLOCUMAB
     Indication: HYPERLIPIDAEMIA
     Dosage: 140 MG, Q2WK
     Route: 058
  15. CARVEDILOL. [Concomitant]
     Active Substance: CARVEDILOL
     Dosage: 12.5 MG, UNK
  16. CYCLOBENZAPRINE. [Concomitant]
     Active Substance: CYCLOBENZAPRINE
     Dosage: 5 MG, UNK
  17. FLUZONE [Concomitant]
     Active Substance: INFLUENZA A VIRUS A/CALIFORNIA/7/2009 X-179A (H1N1) ANTIGEN (FORMALDEHYDE INACTIVATED)\INFLUENZA A VIRUS A/VICTORIA/210/2009 X-187 (H3N2) ANTIGEN (FORMALDEHYDE INACTIVATED)\INFLUENZA B VIRUS B/BRISBANE/60/2008 ANTIGEN (FORMALDEHYDE INACTIVATED)
     Dosage: UNK
  18. NOVOLOG [Concomitant]
     Active Substance: INSULIN ASPART
     Dosage: UNK (100/ML)
  19. OFLOXACIN. [Concomitant]
     Active Substance: OFLOXACIN
     Dosage: UNK (0.3% OTIC)

REACTIONS (1)
  - Weight increased [Not Recovered/Not Resolved]
